FAERS Safety Report 10569054 (Version 2)
Quarter: 2015Q1

REPORT INFORMATION
  Report Type: Spontaneous
  Country: US (occurrence: US)
  Receive Date: 20141106
  Receipt Date: 20150105
  Transmission Date: 20150720
  Serious: Yes (Other)
  Sender: FDA-Public Use
  Company Number: US-BAYER-2014-161968

PATIENT
  Age: 29 Year
  Sex: Female

DRUGS (4)
  1. SKYLA [Suspect]
     Active Substance: LEVONORGESTREL
     Indication: CONTRACEPTION
     Dosage: 14 MCG/24HR, CONT
     Route: 015
     Dates: start: 20140501
  2. CLONAZEPAM. [Concomitant]
     Active Substance: CLONAZEPAM
     Indication: BIPOLAR DISORDER
  3. GABAPENTIN. [Concomitant]
     Active Substance: GABAPENTIN
     Indication: BIPOLAR DISORDER
  4. LITHIUM [Concomitant]
     Active Substance: LITHIUM CARBONATE
     Indication: BIPOLAR DISORDER

REACTIONS (16)
  - Vision blurred [Not Recovered/Not Resolved]
  - Dizziness [None]
  - Dizziness [Not Recovered/Not Resolved]
  - Heart rate increased [None]
  - Heart rate increased [None]
  - Blood pressure fluctuation [None]
  - Vulvovaginal discomfort [None]
  - Chest pain [None]
  - Photophobia [Not Recovered/Not Resolved]
  - Hypothyroidism [None]
  - Blood potassium decreased [None]
  - Loss of consciousness [None]
  - Vulvovaginal pain [None]
  - Feeling abnormal [None]
  - Syncope [None]
  - Breast pain [None]

NARRATIVE: CASE EVENT DATE: 201406
